FAERS Safety Report 10202471 (Version 2)
Quarter: 2014Q3

REPORT INFORMATION
  Report Type: Spontaneous
  Country: JP (occurrence: JP)
  Receive Date: 20140528
  Receipt Date: 20140711
  Transmission Date: 20150326
  Serious: Yes (Hospitalization, Other)
  Sender: FDA-Public Use
  Company Number: JP-B.I. PHARMACEUTICALS,INC./RIDGEFIELD-2014-BI-23331NB

PATIENT
  Age: 79 Year
  Sex: Female

DRUGS (2)
  1. TRAZENTA [Suspect]
     Active Substance: LINAGLIPTIN
     Indication: PRODUCT USED FOR UNKNOWN INDICATION
     Route: 065
  2. TRAZENTA [Suspect]
     Active Substance: LINAGLIPTIN
     Route: 065

REACTIONS (1)
  - Hepatic cancer [Unknown]
